FAERS Safety Report 12127091 (Version 4)
Quarter: 2016Q2

REPORT INFORMATION
  Report Type: Spontaneous
  Country: BR (occurrence: BR)
  Receive Date: 20160229
  Receipt Date: 20160421
  Transmission Date: 20160815
  Serious: Yes (Hospitalization, Other)
  Sender: FDA-Public Use
  Company Number: BR-JNJFOC-20160226110

PATIENT
  Age: 45 Year
  Sex: Female
  Weight: 47 kg

DRUGS (2)
  1. REMICADE [Suspect]
     Active Substance: INFLIXIMAB
     Indication: CROHN^S DISEASE
     Route: 042
  2. REMICADE [Suspect]
     Active Substance: INFLIXIMAB
     Indication: CROHN^S DISEASE
     Route: 042
     Dates: start: 20160213

REACTIONS (7)
  - Gastrointestinal infection [Recovering/Resolving]
  - Incorrect dose administered [Unknown]
  - Constipation [Recovering/Resolving]
  - Thrombosis [Recovering/Resolving]
  - Weight decreased [Unknown]
  - Off label use [Unknown]
  - Intestinal resection [Recovering/Resolving]

NARRATIVE: CASE EVENT DATE: 201601
